FAERS Safety Report 23433907 (Version 1)
Quarter: 2024Q1

REPORT INFORMATION
  Report Type: Spontaneous
  Country: US (occurrence: None)
  Receive Date: 20240123
  Receipt Date: 20240123
  Transmission Date: 20240409
  Serious: Yes (Hospitalization)
  Sender: FDA-Public Use
  Company Number: None

PATIENT
  Age: 73 Year
  Sex: Male
  Weight: 101.2 kg

DRUGS (1)
  1. RYBELSUS [Suspect]
     Active Substance: SEMAGLUTIDE
     Indication: Type 2 diabetes mellitus
     Dosage: FREQUENCY : DAILY;?
     Route: 048
     Dates: end: 20240111

REACTIONS (9)
  - Acute myocardial infarction [None]
  - Cardiac failure congestive [None]
  - Atrial fibrillation [None]
  - Tricuspid valve incompetence [None]
  - Mitral valve incompetence [None]
  - Therapy interrupted [None]
  - Nausea [None]
  - Malaise [None]
  - Ileus [None]

NARRATIVE: CASE EVENT DATE: 20240122
